FAERS Safety Report 19429631 (Version 3)
Quarter: 2021Q4

REPORT INFORMATION
  Report Type: Other
  Country: US (occurrence: None)
  Receive Date: 20210617
  Receipt Date: 20211117
  Transmission Date: 20220303
  Serious: Yes (Hospitalization, Other)
  Sender: FDA-Public Use
  Company Number: US-ROCHE-2847612

PATIENT
  Age: 51 Year
  Sex: Female
  Weight: 59.020 kg

DRUGS (5)
  1. OCREVUS [Suspect]
     Active Substance: OCRELIZUMAB
     Indication: Relapsing multiple sclerosis
     Dosage: ONGOING YES?DARE OF TREATMENT: 31/MAY/2019, 03/NOV/2019, 07/FEB/2020, 03/NOV/2020, 08/NOV/2020
     Route: 042
     Dates: start: 20190513
  2. OCREVUS [Suspect]
     Active Substance: OCRELIZUMAB
     Indication: Multiple sclerosis
     Route: 042
     Dates: start: 201906
  3. TYLENOL [Concomitant]
     Active Substance: ACETAMINOPHEN
  4. BENADRYL [Concomitant]
     Active Substance: DIPHENHYDRAMINE HYDROCHLORIDE
  5. PREDNISONE [Concomitant]
     Active Substance: PREDNISONE

REACTIONS (5)
  - COVID-19 [Recovering/Resolving]
  - Weight increased [Recovered/Resolved]
  - Multiple sclerosis [Not Recovered/Not Resolved]
  - Anaphylactic reaction [Recovered/Resolved]
  - SARS-CoV-2 antibody test negative [Unknown]

NARRATIVE: CASE EVENT DATE: 20201001
